FAERS Safety Report 24105487 (Version 1)
Quarter: 2024Q3

REPORT INFORMATION
  Report Type: Spontaneous
  Country: NL (occurrence: NL)
  Receive Date: 20240717
  Receipt Date: 20240717
  Transmission Date: 20241016
  Serious: Yes (Life-Threatening)
  Sender: ORGANON
  Company Number: None

PATIENT
  Age: 48 Year
  Sex: Female
  Weight: 75 kg

DRUGS (2)
  1. EZETIMIBE [Suspect]
     Active Substance: EZETIMIBE
     Indication: Blood cholesterol
     Dosage: 10 MILLIGRAM, PER DAY (QD)
     Dates: start: 20240515, end: 20240522
  2. REPATHA [Suspect]
     Active Substance: EVOLOCUMAB
     Indication: Blood cholesterol
     Dosage: 1 DOSAGE FORM EVERY 2 WEEKS (140MG/ML PEN 1ML)
     Dates: start: 20240515, end: 20240529

REACTIONS (3)
  - Rash [Not Recovered/Not Resolved]
  - Face oedema [Not Recovered/Not Resolved]
  - Rash pruritic [Not Recovered/Not Resolved]
